FAERS Safety Report 18915388 (Version 1)
Quarter: 2021Q1

REPORT INFORMATION
  Report Type: Report from Study
  Country: US (occurrence: US)
  Receive Date: 20210219
  Receipt Date: 20210219
  Transmission Date: 20210420
  Serious: Yes (Other)
  Sender: FDA-Public Use
  Company Number: US-EMD SERONO-9219633

PATIENT
  Sex: Female
  Weight: 87 kg

DRUGS (1)
  1. REBIF [Suspect]
     Active Substance: INTERFERON BETA-1A
     Indication: PRODUCT USED FOR UNKNOWN INDICATION
     Route: 058
     Dates: start: 20190306

REACTIONS (9)
  - Live birth [Recovered/Resolved]
  - Precancerous cells present [Unknown]
  - Dysmenorrhoea [Unknown]
  - Nodule [Unknown]
  - Cervix disorder [Unknown]
  - Smear cervix abnormal [Unknown]
  - Injection site pain [Unknown]
  - Scar [Unknown]
  - Maternal exposure during pregnancy [Recovered/Resolved]
